FAERS Safety Report 4615454-5 (Version None)
Quarter: 2005Q1

REPORT INFORMATION
  Report Type: 
  Country: None (occurrence: None)
  Receive Date: 20050317
  Receipt Date: 20050307
  Transmission Date: 20050727
  Serious: Yes (Hospitalization)
  Sender: FDA-Public Use
  Company Number: 2005042225

PATIENT
  Sex: Female

DRUGS (10)
  1. ALDACTAZIDA (HYDROCHLOROTHIAZIDE, SPIRONOLACTONE) [Suspect]
     Indication: ILL-DEFINED DISORDER
     Dosage: ORAL
     Route: 048
     Dates: end: 20050204
  2. BISOPROLOL FUMARATE [Suspect]
     Indication: ILL-DEFINED DISORDER
     Dosage: 5 MG (5 MG, DAILY INTERVAL: DAILY), ORAL
     Route: 048
     Dates: end: 20050204
  3. UDRAMIL (TRANDOLAPRIL, VERAPAMIL HYDROCHLORIDE) [Suspect]
     Indication: ILL-DEFINED DISORDER
     Dosage: 1 DF (DAILY: INTERVAL: DAILY), ORAL
     Route: 048
     Dates: end: 20050204
  4. GINKO BILOBA EXTRACT (GINKO BILOBA  EXTRACT) [Concomitant]
  5. ZOLPIDEM TARTRATE [Concomitant]
  6. TRIMIPRAMINE MALEATE [Concomitant]
  7. CITALOPRAM HYDROBROMIDE [Concomitant]
  8. SIMVASTATIN [Concomitant]
  9. ACETYLSALICYLIC ACID SRT [Concomitant]
  10. FELODIPINE [Concomitant]

REACTIONS (6)
  - BRADYCARDIA [None]
  - FEELING ABNORMAL [None]
  - HYPERKALAEMIA [None]
  - NAUSEA [None]
  - NODAL RHYTHM [None]
  - VOMITING [None]
